FAERS Safety Report 20373576 (Version 1)
Quarter: 2022Q1

REPORT INFORMATION
  Report Type: Report from Study
  Country: CA (occurrence: CA)
  Receive Date: 20220125
  Receipt Date: 20220125
  Transmission Date: 20220423
  Serious: Yes (Other)
  Sender: FDA-Public Use
  Company Number: CA-BIOGEN-2022BI01088161

PATIENT
  Sex: Female

DRUGS (1)
  1. SPINRAZA [Suspect]
     Active Substance: NUSINERSEN
     Indication: Spinal muscular atrophy
     Dosage: DAYS 0 14 28 58 AND EVERY 4 MONTHS THEREAFTER
     Route: 037
     Dates: start: 20181106

REACTIONS (6)
  - Developmental hip dysplasia [Unknown]
  - Musculoskeletal discomfort [Unknown]
  - Scoliosis [Unknown]
  - Joint dislocation [Unknown]
  - Muscle tightness [Unknown]
  - Hip deformity [Unknown]
